FAERS Safety Report 5257067-0 (Version None)
Quarter: 2007Q1

REPORT INFORMATION
  Report Type: 
  Country: None (occurrence: None)
  Receive Date: 20070307
  Receipt Date: 20070301
  Transmission Date: 20070707
  Serious: Yes (Hospitalization, Other)
  Sender: FDA-Public Use
  Company Number: ES-AVENTIS-200710966EU

PATIENT
  Age: 78 Year
  Sex: Female
  Weight: 80 kg

DRUGS (6)
  1. CLEXANE [Suspect]
     Indication: PROPHYLAXIS
     Route: 058
     Dates: start: 20061106, end: 20061206
  2. ENALAPRIL BELMAC [Suspect]
     Route: 048
     Dates: start: 20051205
  3. AMERIDE                            /00206601/ [Suspect]
     Indication: DRUG USE FOR UNKNOWN INDICATION
     Route: 048
     Dates: start: 20051101
  4. CARVEDILOL BEXAL [Concomitant]
     Route: 048
     Dates: start: 20051101
  5. FERRO SANOL                        /00023514/ [Concomitant]
     Route: 048
     Dates: start: 20061001
  6. LEXATIN [Concomitant]
     Route: 048
     Dates: start: 20060601

REACTIONS (1)
  - HYPERKALAEMIA [None]
